FAERS Safety Report 20599996 (Version 2)
Quarter: 2022Q1

REPORT INFORMATION
  Report Type: Spontaneous
  Country: US (occurrence: US)
  Receive Date: 20220316
  Receipt Date: 20220329
  Transmission Date: 20220423
  Serious: No
  Sender: FDA-Public Use
  Company Number: US-JNJFOC-20220319302

PATIENT
  Sex: Female

DRUGS (2)
  1. INVEGA [Suspect]
     Active Substance: PALIPERIDONE
     Indication: Post-traumatic stress disorder
     Route: 048
  2. INVEGA [Suspect]
     Active Substance: PALIPERIDONE
     Indication: Drug level increased
     Route: 048

REACTIONS (6)
  - Mood altered [Unknown]
  - Product use in unapproved indication [Unknown]
  - Off label use [Unknown]
  - Dizziness [Unknown]
  - Anxiety [Unknown]
  - Product physical issue [Unknown]
